FAERS Safety Report 15965677 (Version 1)
Quarter: 2019Q1

REPORT INFORMATION
  Report Type: Spontaneous
  Country: US (occurrence: US)
  Receive Date: 20190215
  Receipt Date: 20190215
  Transmission Date: 20190418
  Serious: Yes (Other)
  Sender: FDA-Public Use
  Company Number: US-PHARMING-PHAUS2019000121

PATIENT

DRUGS (30)
  1. BIOTIN [Concomitant]
     Active Substance: BIOTIN
  2. FENOFIBRATE. [Concomitant]
     Active Substance: FENOFIBRATE
  3. ONDANSETRON [Concomitant]
     Active Substance: ONDANSETRON
  4. ATORVASTATIN [Concomitant]
     Active Substance: ATORVASTATIN
  5. PROTONIX 40 [Concomitant]
  6. ELETRIPTAN. [Concomitant]
     Active Substance: ELETRIPTAN
  7. TRAZODONE HYDROCHLORIDE. [Concomitant]
     Active Substance: TRAZODONE HYDROCHLORIDE
  8. MAGNESIUM [Concomitant]
     Active Substance: MAGNESIUM
  9. MULTI-VITAMIN DAILY [Concomitant]
  10. STERILE WATER [Concomitant]
     Active Substance: WATER
  11. FLONASE [Concomitant]
     Active Substance: FLUTICASONE PROPIONATE
  12. VITAMIN C [Concomitant]
     Active Substance: ASCORBIC ACID
  13. AMLODIPINE BESYLATE. [Concomitant]
     Active Substance: AMLODIPINE BESYLATE
  14. VENLAFAXINE [Concomitant]
     Active Substance: VENLAFAXINE HYDROCHLORIDE
  15. RUCONEST [Suspect]
     Active Substance: HUMAN C1-ESTERASE INHIBITOR
     Indication: HEREDITARY ANGIOEDEMA
     Dosage: 2100 IU, AS NEEDED
     Route: 042
     Dates: start: 20190105
  16. NORMAL SALINE [Concomitant]
     Active Substance: SODIUM CHLORIDE
  17. ACETAMINOPHEN. [Concomitant]
     Active Substance: ACETAMINOPHEN
  18. REGLAN [Concomitant]
     Active Substance: METOCLOPRAMIDE HYDROCHLORIDE
  19. TAKHZYRO [Concomitant]
     Active Substance: LANADELUMAB-FLYO
  20. IBUPROFEN. [Concomitant]
     Active Substance: IBUPROFEN
  21. WELLBUTRIN [Concomitant]
     Active Substance: BUPROPION HYDROCHLORIDE
  22. BERINERT [Concomitant]
     Active Substance: HUMAN C1-ESTERASE INHIBITOR
  23. FIRAZYR [Concomitant]
     Active Substance: ICATIBANT ACETATE
  24. HEPARIN [Concomitant]
     Active Substance: HEPARIN SODIUM
  25. SODIUM CHLORIDE. [Concomitant]
     Active Substance: SODIUM CHLORIDE
  26. EPINEPHRINE. [Concomitant]
     Active Substance: EPINEPHRINE
  27. DIPHENHYDRAMINE. [Concomitant]
     Active Substance: DIPHENHYDRAMINE
  28. GLUCOSAMINE [Concomitant]
     Active Substance: GLUCOSAMINE
  29. LEVOTHYROXINE SODIUM. [Concomitant]
     Active Substance: LEVOTHYROXINE SODIUM
  30. BACLOFEN. [Concomitant]
     Active Substance: BACLOFEN

REACTIONS (1)
  - Drug effect incomplete [Unknown]
